FAERS Safety Report 5759538-7 (Version None)
Quarter: 2008Q2

REPORT INFORMATION
  Report Type: 
  Country: None (occurrence: None)
  Receive Date: 20080604
  Receipt Date: 20080604
  Transmission Date: 20081010
  Serious: Yes (Other)
  Sender: FDA-Public Use
  Company Number: None

PATIENT
  Sex: Female
  Weight: 77.1115 kg

DRUGS (2)
  1. ORTHO TRI-CYCLEN [Suspect]
     Indication: ACNE
     Dosage: 1 TAB QD PO
     Route: 048
     Dates: start: 20080201, end: 20080521
  2. ORTHO TRI-CYCLEN [Suspect]
     Indication: DYSMENORRHOEA
     Dosage: 1 TAB QD PO
     Route: 048
     Dates: start: 20080201, end: 20080521

REACTIONS (2)
  - METRORRHAGIA [None]
  - PHARMACEUTICAL PRODUCT COMPLAINT [None]
